FAERS Safety Report 4973986-4 (Version None)
Quarter: 2006Q2

REPORT INFORMATION
  Report Type: 
  Country: None (occurrence: None)
  Receive Date: 20060407
  Receipt Date: 20060330
  Transmission Date: 20061013
  Serious: Yes (Hospitalization)
  Sender: FDA-Public Use
  Company Number: 2006BI003265

PATIENT
  Age: 46 Year
  Sex: Male

DRUGS (6)
  1. AVONEX [Suspect]
     Indication: MULTIPLE SCLEROSIS
     Dosage: 30 UG QW IM
     Route: 030
  2. BACLOFEN [Concomitant]
  3. ASPIRIN [Concomitant]
  4. PEPCID [Concomitant]
  5. DIPHENHYDRAMINE HCL [Concomitant]
  6. IBUPROFEN [Concomitant]

REACTIONS (3)
  - BLOOD PRESSURE FLUCTUATION [None]
  - HYPERGLYCAEMIA [None]
  - TENDON DISORDER [None]
